FAERS Safety Report 8430452-1 (Version None)
Quarter: 2012Q2

REPORT INFORMATION
  Report Type: 
  Country: None (occurrence: None)
  Receive Date: 20120606
  Receipt Date: 20120606
  Transmission Date: 20120825
  Serious: Yes (Hospitalization)
  Sender: FDA-Public Use
  Company Number: None

PATIENT
  Age: 60 Year
  Sex: Male
  Weight: 132.7 kg

DRUGS (2)
  1. ALBUTEROL [Suspect]
     Dosage: MCG INHALE
     Route: 055
  2. LOSARTAN POTASSIUM [Suspect]
     Indication: HYPERTENSION
     Dosage: 100 MG EVERY DAY PO
     Route: 048
     Dates: start: 20060630, end: 20120318

REACTIONS (2)
  - ANGIOEDEMA [None]
  - PARAESTHESIA ORAL [None]
